FAERS Safety Report 13632795 (Version 5)
Quarter: 2018Q3

REPORT INFORMATION
  Report Type: Report from Study
  Country: CN (occurrence: CN)
  Receive Date: 20170609
  Receipt Date: 20180807
  Transmission Date: 20181010
  Serious: Yes (Hospitalization, Other)
  Sender: FDA-Public Use
  Company Number: CN-B.I. PHARMACEUTICALS,INC./RIDGEFIELD-2017-BI-030796

PATIENT
  Age: 64 Year
  Sex: Male
  Weight: 74 kg

DRUGS (2)
  1. AFATINIB [Suspect]
     Active Substance: AFATINIB
     Indication: NON-SMALL CELL LUNG CANCER
     Dosage: STRENGTH: 40MG/30MG/20MG
     Route: 048
     Dates: start: 20170505, end: 20170520
  2. AFATINIB [Suspect]
     Active Substance: AFATINIB
     Dosage: STRENGTH: 40MG/30MG/20MG
     Route: 048
     Dates: start: 20170601

REACTIONS (3)
  - Ileus [Recovered/Resolved]
  - Intestinal obstruction [Recovered/Resolved]
  - Chest discomfort [Not Recovered/Not Resolved]

NARRATIVE: CASE EVENT DATE: 20170508
